FAERS Safety Report 9596526 (Version 1)
Quarter: 2013Q4

REPORT INFORMATION
  Report Type: Spontaneous
  Country: US (occurrence: US)
  Receive Date: 20131004
  Receipt Date: 20131004
  Transmission Date: 20140711
  Serious: No
  Sender: FDA-Public Use
  Company Number: US-AMGEN-USASP2012068435

PATIENT
  Age: 47 Year
  Sex: Female
  Weight: 20.86 kg

DRUGS (7)
  1. ENBREL [Suspect]
     Indication: RHEUMATOID ARTHRITIS
     Dosage: 50 MG, QWK
     Route: 058
  2. MULTIVITAMINS, PLAIN [Concomitant]
     Dosage: UNK
  3. VITAMIN D                          /00107901/ [Concomitant]
     Dosage: 1000 UNIT, UNK
  4. FOLIC ACID [Concomitant]
     Dosage: 5 MG, UNK
  5. SLEEPING                           /00000402/ [Concomitant]
     Dosage: 25 MG, UNK
  6. METHOTREXATE [Concomitant]
     Dosage: 2.5 MG, UNK
  7. IBUPROFEN [Concomitant]
     Dosage: 200 MG, UNK

REACTIONS (6)
  - Pain in extremity [Unknown]
  - Condition aggravated [Unknown]
  - Injection site mass [Unknown]
  - Injection site rash [Unknown]
  - Injection site pain [Unknown]
  - Injection site pruritus [Unknown]
